FAERS Safety Report 4305811-9 (Version None)
Quarter: 2004Q1

REPORT INFORMATION
  Report Type: 
  Country: None (occurrence: None)
  Receive Date: 20040225
  Receipt Date: 20040217
  Transmission Date: 20041129
  Serious: Yes (Death)
  Sender: FDA-Public Use
  Company Number: 2003-111293-NL

PATIENT
  Age: 52 Year
  Sex: Male

DRUGS (9)
  1. ORGARAN [Suspect]
     Indication: DISSEMINATED INTRAVASCULAR COAGULATION
     Dosage: 2500 ANTI_XA INTRAVENOUS NOS
     Route: 042
     Dates: start: 20031123, end: 20031124
  2. NORADRENALINE [Concomitant]
  3. FENTANYL CITRATE [Concomitant]
  4. MIDAZOLAM HCL [Concomitant]
  5. VANCOMYCIN HYDROCHLORIDE [Concomitant]
  6. AMPHOTERICIN B [Concomitant]
  7. KANAMYCIN [Concomitant]
  8. ENTERONON R [Concomitant]
  9. GASMOTIN [Concomitant]

REACTIONS (4)
  - COAGULOPATHY [None]
  - HEPATIC FUNCTION ABNORMAL [None]
  - METABOLIC ACIDOSIS [None]
  - MULTI-ORGAN FAILURE [None]
